FAERS Safety Report 13615481 (Version 6)
Quarter: 2018Q3

REPORT INFORMATION
  Report Type: Spontaneous
  Country: JP (occurrence: JP)
  Receive Date: 20170606
  Receipt Date: 20180716
  Transmission Date: 20181010
  Serious: Yes (Other)
  Sender: FDA-Public Use
  Company Number: JP-PFIZER INC-2016487880

PATIENT
  Age: 65 Year
  Sex: Male

DRUGS (4)
  1. PACLITAXEL. [Suspect]
     Active Substance: PACLITAXEL
     Indication: EXTRAMAMMARY PAGET^S DISEASE
     Dosage: 120 MG/M2, CYCLIC (2 WEEKS ON/2 WEEKS OFF)
  2. CISPLATIN. [Suspect]
     Active Substance: CISPLATIN
     Indication: EXTRAMAMMARY PAGET^S DISEASE
     Dosage: 30 MG/M2, CYCLIC (2 WEEKS ON/2 WEEKS OFF)
  3. DOCETAXEL. [Suspect]
     Active Substance: DOCETAXEL
     Indication: EXTRAMAMMARY PAGET^S DISEASE
     Dosage: 25 MG/M2, WEEKLY, CYCLIC
  4. EPIRUBICIN HCL [Suspect]
     Active Substance: EPIRUBICIN HYDROCHLORIDE
     Indication: EXTRAMAMMARY PAGET^S DISEASE
     Dosage: 50 MG/M2, CYCLIC (2 WEEKS ON/2 WEEKS OFF)

REACTIONS (1)
  - Haematotoxicity [Unknown]
